FAERS Safety Report 5876883-5 (Version None)
Quarter: 2008Q3

REPORT INFORMATION
  Report Type: 
  Country: None (occurrence: None)
  Receive Date: 20080910
  Receipt Date: 20080905
  Transmission Date: 20090109
  Serious: Yes (Death)
  Sender: FDA-Public Use
  Company Number: US-CELGENEUS-163-21880-08050512

PATIENT
  Sex: Male

DRUGS (2)
  1. REVLIMID [Suspect]
     Indication: LYMPHOMA
     Route: 048
     Dates: start: 20071031
  2. REVLIMID [Suspect]
     Route: 048
     Dates: start: 20071017, end: 20071001

REACTIONS (1)
  - CEREBRAL HAEMORRHAGE [None]
